FAERS Safety Report 6252112-8 (Version None)
Quarter: 2009Q2

REPORT INFORMATION
  Report Type: 
  Country: None (occurrence: None)
  Receive Date: 20090630
  Receipt Date: 20071130
  Transmission Date: 20091009
  Serious: Yes (Hospitalization)
  Sender: FDA-Public Use
  Company Number: US-ROCHE-638999

PATIENT
  Sex: Male

DRUGS (16)
  1. ENFUVIRTIDE [Suspect]
     Route: 065
     Dates: start: 20040318, end: 20070201
  2. ENFUVIRTIDE [Suspect]
     Route: 065
     Dates: start: 20070706, end: 20071201
  3. EPIVIR [Concomitant]
     Dates: start: 20040318, end: 20070201
  4. KALETRA [Concomitant]
     Dates: start: 20040318, end: 20070425
  5. REYATAZ [Concomitant]
     Dates: start: 20040318, end: 20070425
  6. VIREAD [Concomitant]
     Dates: start: 20040318, end: 20070201
  7. ZERIT [Concomitant]
     Dates: start: 20060201, end: 20070425
  8. INTENSAIN [Concomitant]
     Dates: start: 20070426, end: 20071201
  9. ISENTRESS [Concomitant]
     Dates: start: 20070426, end: 20071201
  10. NORVIR [Concomitant]
     Dates: start: 20070426, end: 20071201
  11. PREZISTA [Concomitant]
     Dates: start: 20070426, end: 20071201
  12. TRUVADA [Concomitant]
     Dates: start: 20070426, end: 20071201
  13. BACTRIM DS [Concomitant]
     Dates: start: 19950824, end: 20071201
  14. ZITHROMAX [Concomitant]
     Dates: start: 19950824, end: 20071201
  15. AMFOTERICIN B [Concomitant]
     Dates: start: 20060713, end: 20071201
  16. NOXAFIL [Concomitant]
     Dosage: DOSE REPORTED AS 200MG/5ML
     Dates: start: 20070612, end: 20071201

REACTIONS (3)
  - ANAL CANCER [None]
  - COLITIS [None]
  - MUCOSAL INFLAMMATION [None]
